FAERS Safety Report 8557681-0 (Version None)
Quarter: 2012Q2

REPORT INFORMATION
  Report Type: 
  Country: None (occurrence: None)
  Receive Date: 20120418
  Receipt Date: 20110426
  Transmission Date: 20120825
  Serious: Yes (Other)
  Sender: FDA-Public Use
  Company Number: PHHY2011US21764

PATIENT
  Age: 70 Year
  Sex: Female

DRUGS (2)
  1. TORSEMIDE [Concomitant]
  2. DIOVAN HCT [Suspect]
     Indication: FLUID RETENTION
     Dates: end: 20101001

REACTIONS (8)
  - BLOOD CREATININE INCREASED [None]
  - RENAL FAILURE [None]
  - BLOOD UREA INCREASED [None]
  - FLATULENCE [None]
  - NAUSEA [None]
  - DIARRHOEA [None]
  - DEHYDRATION [None]
  - VOMITING [None]
